FAERS Safety Report 19191279 (Version 2)
Quarter: 2021Q2

REPORT INFORMATION
  Report Type: Report from Study
  Country: CO (occurrence: CO)
  Receive Date: 20210428
  Receipt Date: 20210518
  Transmission Date: 20210717
  Serious: Yes (Life-Threatening)
  Sender: FDA-Public Use
  Company Number: CO-INCYTE CORPORATION-2021IN003429

PATIENT

DRUGS (9)
  1. JAKAVI [Suspect]
     Active Substance: RUXOLITINIB
     Dosage: 40 MG, QD
     Route: 048
     Dates: end: 20210330
  2. JAKAVI [Suspect]
     Active Substance: RUXOLITINIB
     Dosage: 20 MG, Q24H
     Route: 048
     Dates: start: 20210501, end: 20210506
  3. JAKAVI [Suspect]
     Active Substance: RUXOLITINIB
     Dosage: 10 MG, Q12H
     Route: 048
     Dates: start: 20210507
  4. JAKAVI [Suspect]
     Active Substance: RUXOLITINIB
     Indication: MYELOFIBROSIS
     Dosage: 20 MG, QD
     Route: 065
  5. JAKAVI [Suspect]
     Active Substance: RUXOLITINIB
     Dosage: 10 MG, Q12H
     Route: 048
     Dates: start: 20210330, end: 20210428
  6. LOSARTAN. [Suspect]
     Active Substance: LOSARTAN
     Indication: HYPERTENSION
     Dosage: 50 MG, Q24H (1 YEAR AND A HALF AGO APPROXIMATELY)
     Route: 048
  7. JAKAVI [Suspect]
     Active Substance: RUXOLITINIB
     Dosage: 20 MG, Q24H
     Route: 048
     Dates: start: 20210324, end: 20210329
  8. LEVOTHYROXINE. [Concomitant]
     Active Substance: LEVOTHYROXINE
     Indication: HYPERTHYROIDISM
     Dosage: 50 MG, QD (ONE HOUR BEFORE BREAKFAST), (8 YEARS AGO APPROXIMATELY)
     Route: 048
  9. JAKAVI [Suspect]
     Active Substance: RUXOLITINIB
     Dosage: UNK, Q12H (1 OF 10 MG)
     Route: 048

REACTIONS (9)
  - Inappropriate schedule of product administration [Unknown]
  - Haematocrit increased [Recovered/Resolved]
  - Haemoglobin abnormal [Recovered/Resolved]
  - Haematocrit decreased [Unknown]
  - Platelet count increased [Recovering/Resolving]
  - Platelet count decreased [Unknown]
  - Product supply issue [Unknown]
  - Haemoglobin decreased [Unknown]
  - Ear pain [Recovered/Resolved]
